FAERS Safety Report 8540839-4 (Version None)
Quarter: 2012Q2

REPORT INFORMATION
  Report Type: 
  Country: None (occurrence: None)
  Receive Date: 20120412
  Receipt Date: 20090107
  Transmission Date: 20120825
  Serious: Yes (Other)
  Sender: FDA-Public Use
  Company Number: PHEH2009US00595

PATIENT
  Sex: Female

DRUGS (9)
  1. AREDIA [Suspect]
     Indication: BREAST CANCER
     Dosage: 90 MG, QMO, INTRAVENOUS
     Route: 042
     Dates: start: 20010501, end: 20020501
  2. PREDNISONE TAB [Concomitant]
  3. PLAQUENIL [Concomitant]
  4. ZOMETA [Suspect]
     Indication: BREAST CANCER
     Dosage: 4 MG, QMO, INTRAVENOUS
     Route: 042
     Dates: start: 20020601, end: 20040101
  5. CALCITRIOL [Concomitant]
  6. LASIX [Concomitant]
  7. PROCRIT /00909301/ (ERYTHROIPOIETIN) [Concomitant]
  8. PLAVIX [Concomitant]
  9. TAMOXIFEN CITRATE [Concomitant]

REACTIONS (2)
  - WOUND SECRETION [None]
  - BONE DISORDER [None]
